FAERS Safety Report 6880916-7 (Version None)
Quarter: 2010Q3

REPORT INFORMATION
  Report Type: 
  Country: None (occurrence: None)
  Receive Date: 20100728
  Receipt Date: 20100723
  Transmission Date: 20110219
  Serious: Yes (Hospitalization, Other)
  Sender: FDA-Public Use
  Company Number: CA-ABBOTT-10P-028-0659415-00

PATIENT
  Sex: Female

DRUGS (2)
  1. HUMIRA [Suspect]
     Indication: CROHN'S DISEASE
     Route: 058
     Dates: start: 20090512, end: 20090901
  2. HUMIRA [Suspect]
     Route: 058
     Dates: start: 20100101

REACTIONS (3)
  - FREQUENT BOWEL MOVEMENTS [None]
  - HOSPITALISATION [None]
  - PNEUMONIA [None]
